FAERS Safety Report 4627684-7 (Version None)
Quarter: 2005Q2

REPORT INFORMATION
  Report Type: 
  Country: None (occurrence: None)
  Receive Date: 20050401
  Receipt Date: 20050316
  Transmission Date: 20051028
  Serious: Yes (Hospitalization)
  Sender: FDA-Public Use
  Company Number: 2005S1001440

PATIENT
  Age: 68 Year
  Sex: Male
  Weight: 99.7913 kg

DRUGS (12)
  1. FENTANYL [Suspect]
     Indication: RHEUMATOID ARTHRITIS
     Dosage: 100 MCG; TRDL
     Route: 062
     Dates: start: 20050212, end: 20050215
  2. FENTANYL [Suspect]
     Indication: RHEUMATOID ARTHRITIS
     Dosage: 100 MCG; TRDL
     Route: 062
     Dates: start: 20050313, end: 20050315
  3. PREDNISONE [Concomitant]
  4. CLOPIDOGREL BISULFATE [Concomitant]
  5. ENALAPRIL MALEATE [Concomitant]
  6. TOLTERODINE TARTRATE [Concomitant]
  7. REPAGLINIDE [Concomitant]
  8. ESOMEPRAZOLE MAGNESIUM [Concomitant]
  9. LEVOTHYROXINE SODIUM [Concomitant]
  10. MELOXICAM [Concomitant]
  11. FINASTERIDE [Concomitant]
  12. ZOLPIDEM TARTRATE [Concomitant]

REACTIONS (6)
  - BALANCE DISORDER [None]
  - CEREBROVASCULAR ACCIDENT [None]
  - DIPLOPIA [None]
  - DYSARTHRIA [None]
  - HALLUCINATION [None]
  - VISION BLURRED [None]
